FAERS Safety Report 24134166 (Version 1)
Quarter: 2024Q3

REPORT INFORMATION
  Report Type: Report from Study
  Country: US (occurrence: None)
  Receive Date: 20240724
  Receipt Date: 20240724
  Transmission Date: 20241017
  Serious: Yes (Hospitalization, Other)
  Sender: UNICHEM
  Company Number: US-Unichem Pharmaceuticals (USA) Inc-UCM202407-000909

PATIENT
  Age: 15 Year
  Sex: Female
  Weight: 49 kg

DRUGS (2)
  1. AMLODIPINE [Suspect]
     Active Substance: AMLODIPINE BESYLATE
     Indication: Product used for unknown indication
     Dosage: 200-300 MG
  2. ANAKINRA [Concomitant]
     Active Substance: ANAKINRA
     Indication: Haemophagocytic lymphohistiocytosis
     Dosage: UNKNOWN

REACTIONS (7)
  - Acute kidney injury [Recovered/Resolved]
  - Mental status changes [Recovered/Resolved]
  - Lactic acidosis [Recovered/Resolved]
  - Abdominal pain [Recovered/Resolved]
  - Vomiting [Recovered/Resolved]
  - Nausea [Recovered/Resolved]
  - Intentional overdose [Unknown]
